FAERS Safety Report 5462442-5 (Version None)
Quarter: 2007Q3

REPORT INFORMATION
  Report Type: 
  Country: None (occurrence: None)
  Receive Date: 20070814
  Receipt Date: 20070411
  Transmission Date: 20080115
  Serious: Yes (Other)
  Sender: FDA-Public Use
  Company Number: WAES 0601USA02833

PATIENT
  Age: 49 Year
  Sex: Male

DRUGS (12)
  1. FOSAMAX PLUS D [Suspect]
     Dosage: 70MG/2800 IU/PO
     Route: 048
     Dates: start: 20050620, end: 20050901
  2. FOSAMAX [Suspect]
     Indication: SPINAL CORD COMPRESSION
     Dosage: 70 MG/WKY/PO
     Route: 048
     Dates: start: 20051014, end: 20060301
  3. ZOMETA [Suspect]
     Dosage: MTH/IV
     Route: 042
     Dates: start: 20031101, end: 20051031
  4. CASODEX [Concomitant]
  5. CITRACAL CAPLETS + D [Concomitant]
  6. COUMADIN [Concomitant]
  7. FLEXERIL [Concomitant]
  8. HYDROCHLOROT [Concomitant]
  9. LIDODERM [Concomitant]
  10. LUPRON [Concomitant]
  11. NORCO [Concomitant]
  12. TAXOTERE [Concomitant]

REACTIONS (10)
  - ANXIETY [None]
  - CHEST PAIN [None]
  - DIZZINESS [None]
  - ESSENTIAL HYPERTENSION [None]
  - INGUINAL HERNIA [None]
  - NAUSEA [None]
  - OSTEONECROSIS [None]
  - OSTEOSCLEROSIS [None]
  - SINUS POLYP [None]
  - VOMITING [None]
